FAERS Safety Report 5366624-2 (Version None)
Quarter: 2007Q2

REPORT INFORMATION
  Report Type: 
  Country: None (occurrence: None)
  Receive Date: 20070622
  Receipt Date: 20070611
  Transmission Date: 20071010
  Serious: Yes (Other)
  Sender: FDA-Public Use
  Company Number: GR-NOVOPROD-263801

PATIENT
  Sex: Female
  Weight: 1.6 kg

DRUGS (1)
  1. NOVOLOG MIX 70/30 [Suspect]
     Indication: DIABETES MELLITUS NON-INSULIN-DEPENDENT
     Route: 064
     Dates: start: 20060510

REACTIONS (6)
  - CAESAREAN SECTION [None]
  - DRUG EXPOSURE DURING PREGNANCY [None]
  - HAEMOGLOBINOPATHY [None]
  - PLACENTAL DISORDER [None]
  - SMALL FOR DATES BABY [None]
  - UMBILICAL CORD ABNORMALITY [None]
